FAERS Safety Report 6311216-1 (Version None)
Quarter: 2009Q3

REPORT INFORMATION
  Report Type: 
  Country: None (occurrence: None)
  Receive Date: 20090817
  Receipt Date: 20090515
  Transmission Date: 20100115
  Serious: No
  Sender: FDA-Public Use
  Company Number: US-BAYER-200921007NA

PATIENT
  Age: 42 Year
  Sex: Female

DRUGS (3)
  1. YAZ [Suspect]
     Indication: MENSTRUATION IRREGULAR
     Dosage: TOTAL DAILY DOSE: 1 DF
     Route: 048
     Dates: start: 20090401
  2. SERTRALINE [Concomitant]
  3. LOPERAMIDE HCL [Concomitant]

REACTIONS (4)
  - BACK PAIN [None]
  - FEELING ABNORMAL [None]
  - MENSTRUAL DISORDER [None]
  - PREMENSTRUAL SYNDROME [None]
